FAERS Safety Report 5059270-1 (Version None)
Quarter: 2006Q3

REPORT INFORMATION
  Report Type: 
  Country: None (occurrence: None)
  Receive Date: 20060718
  Receipt Date: 20060619
  Transmission Date: 20061208
  Serious: Yes (Other)
  Sender: FDA-Public Use
  Company Number: 2006083018

PATIENT
  Age: 92 Year
  Sex: Female

DRUGS (6)
  1. XALATAN [Suspect]
     Indication: ILL-DEFINED DISORDER
     Dosage: TOPICAL
     Route: 061
  2. GLICLAZIDE [Concomitant]
  3. CO-AMILOFRUSE (AMILORIDE HYDROCHLORIDE, FUROSEMIDE) [Concomitant]
  4. ASPIRIN [Concomitant]
  5. METFORMIN [Concomitant]
  6. SPIRONOLACTONE [Concomitant]

REACTIONS (3)
  - BURNING SENSATION [None]
  - ORAL PAIN [None]
  - PHARYNGEAL OEDEMA [None]
